FAERS Safety Report 12923805 (Version 1)
Quarter: 2016Q4

REPORT INFORMATION
  Report Type: Spontaneous
  Country: GB (occurrence: GB)
  Receive Date: 20161109
  Receipt Date: 20161109
  Transmission Date: 20170207
  Serious: Yes (Hospitalization)
  Sender: FDA-Public Use
  Company Number: GB-AUROBINDO-AUR-APL-2016-13503

PATIENT
  Age: 76 Year
  Sex: Female

DRUGS (13)
  1. BISOPROLOL 7.5 MG [Suspect]
     Active Substance: BISOPROLOL
     Indication: PROPHYLAXIS
     Dosage: 7.5 MG, ONCE A DAY
     Route: 048
  2. PARACETAMOL [Concomitant]
     Active Substance: ACETAMINOPHEN
     Indication: PRODUCT USED FOR UNKNOWN INDICATION
     Dosage: 1 G, FOUR TIMES DAILY
     Route: 065
  3. DIGOXIN. [Suspect]
     Active Substance: DIGOXIN
     Indication: CARDIAC FAILURE CHRONIC
     Dosage: 125 ?G, ONCE A DAY
     Route: 048
  4. BUMETANIDE. [Concomitant]
     Active Substance: BUMETANIDE
     Indication: PRODUCT USED FOR UNKNOWN INDICATION
     Dosage: 2 DF, TWO TIMES A DAY, MORNING AND LUNCHTIME
     Route: 065
  5. LANSOPRAZOLE. [Concomitant]
     Active Substance: LANSOPRAZOLE
     Indication: PRODUCT USED FOR UNKNOWN INDICATION
     Dosage: 30 MG, ONCE A DAY
     Route: 065
  6. ACCRETE D3 [Concomitant]
     Indication: PRODUCT USED FOR UNKNOWN INDICATION
     Dosage: 1 DF, TWO TIMES A DAY
     Route: 065
  7. LEVOTHYROXINE. [Concomitant]
     Active Substance: LEVOTHYROXINE
     Indication: PRODUCT USED FOR UNKNOWN INDICATION
     Dosage: 25 ?G, ONCE A DAY
     Route: 065
  8. BUPRENORPHINE. [Concomitant]
     Active Substance: BUPRENORPHINE
     Indication: PRODUCT USED FOR UNKNOWN INDICATION
     Dosage: 1 DF, EVERY WEEK, 20MCG/HOUR
     Route: 062
  9. PREDNISOLONE. [Concomitant]
     Active Substance: PREDNISOLONE
     Indication: PRODUCT USED FOR UNKNOWN INDICATION
     Dosage: 5 MG, ONCE A DAY, EACH MORNING, AS MAINTENANCE DOSE
     Route: 065
  10. BENDROFLUAZIDE [Suspect]
     Active Substance: BENDROFLUMETHIAZIDE
     Indication: RIGHT VENTRICULAR FAILURE
     Dosage: 5 MG, ONCE A DAY, MORNING
     Route: 048
  11. WARFARIN [Concomitant]
     Active Substance: WARFARIN
     Indication: ANTICOAGULANT THERAPY
     Dosage: AS DIRECTED
     Route: 065
  12. BUPRENORPHINE. [Concomitant]
     Active Substance: BUPRENORPHINE
     Dosage: 10MCG/HOUR
     Route: 062
  13. COLCHICINE. [Concomitant]
     Active Substance: COLCHICINE
     Indication: PRODUCT USED FOR UNKNOWN INDICATION
     Dosage: 500 ?G, ONCE A DAY
     Route: 065

REACTIONS (6)
  - Orthostatic hypotension [Unknown]
  - Bradycardia [Recovering/Resolving]
  - Dizziness postural [Unknown]
  - Atrial fibrillation [Recovering/Resolving]
  - Acute kidney injury [Recovering/Resolving]
  - Fall [Unknown]
